FAERS Safety Report 23420847 (Version 1)
Quarter: 2024Q1

REPORT INFORMATION
  Report Type: Spontaneous
  Country: CA (occurrence: CA)
  Receive Date: 20240119
  Receipt Date: 20240119
  Transmission Date: 20240410
  Serious: Yes (Other)
  Sender: FDA-Public Use
  Company Number: None

PATIENT
  Age: 63 Year
  Sex: Male
  Weight: 112 kg

DRUGS (4)
  1. NORDITROPIN [Suspect]
     Active Substance: SOMATROPIN
     Dosage: 0.3 MG, QD
     Route: 058
  2. NORDITROPIN [Suspect]
     Active Substance: SOMATROPIN
     Indication: Growth hormone deficiency
     Dosage: 0.4 MG, QD
     Route: 058
  3. CORTEF [Concomitant]
     Active Substance: HYDROCORTISONE
     Indication: Product used for unknown indication
     Dosage: 10 MG, QD
     Route: 048
  4. SYNTHROID [Concomitant]
     Active Substance: LEVOTHYROXINE SODIUM
     Indication: Product used for unknown indication
     Dosage: UNK

REACTIONS (28)
  - Asthenia [Not Recovered/Not Resolved]
  - Back pain [Not Recovered/Not Resolved]
  - Bone swelling [Not Recovered/Not Resolved]
  - Central hypothyroidism [Not Recovered/Not Resolved]
  - Cognitive disorder [Not Recovered/Not Resolved]
  - Depressed mood [Not Recovered/Not Resolved]
  - Diabetes insipidus [Not Recovered/Not Resolved]
  - Discouragement [Not Recovered/Not Resolved]
  - Encephalomalacia [Not Recovered/Not Resolved]
  - Fatigue [Not Recovered/Not Resolved]
  - Hypertension [Not Recovered/Not Resolved]
  - Injection site mass [Not Recovered/Not Resolved]
  - Insulin-like growth factor increased [Not Recovered/Not Resolved]
  - Loss of personal independence in daily activities [Not Recovered/Not Resolved]
  - Memory impairment [Not Recovered/Not Resolved]
  - Nausea [Not Recovered/Not Resolved]
  - Obstructive sleep apnoea syndrome [Not Recovered/Not Resolved]
  - Polycythaemia [Not Recovered/Not Resolved]
  - Secondary hypogonadism [Not Recovered/Not Resolved]
  - Thyroxine abnormal [Not Recovered/Not Resolved]
  - Visual field defect [Not Recovered/Not Resolved]
  - Type 2 diabetes mellitus [Not Recovered/Not Resolved]
  - Drug ineffective [Not Recovered/Not Resolved]
  - Incorrect dosage administered [Not Recovered/Not Resolved]
  - Product administered at inappropriate site [Not Recovered/Not Resolved]
  - Device leakage [Not Recovered/Not Resolved]
  - Device mechanical issue [Not Recovered/Not Resolved]
  - Device defective [Not Recovered/Not Resolved]
